FAERS Safety Report 20197052 (Version 9)
Quarter: 2023Q4

REPORT INFORMATION
  Report Type: Other
  Country: CA (occurrence: None)
  Receive Date: 20211217
  Receipt Date: 20231220
  Transmission Date: 20240110
  Serious: No
  Sender: FDA-Public Use
  Company Number: CA-ROCHE-2981046

PATIENT
  Age: 64 Year
  Sex: Female

DRUGS (6)
  1. OCREVUS [Suspect]
     Active Substance: OCRELIZUMAB
     Indication: Primary progressive multiple sclerosis
     Dosage: THEN 600 MG EVERY 6 MONTH
     Route: 042
     Dates: start: 20171027
  2. TYLENOL [Concomitant]
     Active Substance: ACETAMINOPHEN
  3. ADVIL [Concomitant]
     Active Substance: IBUPROFEN
  4. PERINDOPRIL [Concomitant]
     Active Substance: PERINDOPRIL
  5. DALFAMPRIDINE [Concomitant]
     Active Substance: DALFAMPRIDINE
  6. DOXYCYCLINE [Concomitant]
     Active Substance: DOXYCYCLINE

REACTIONS (1)
  - COVID-19 [Recovered/Resolved]

NARRATIVE: CASE EVENT DATE: 20211204
